FAERS Safety Report 4623489-1 (Version None)
Quarter: 2005Q1

REPORT INFORMATION
  Report Type: 
  Country: None (occurrence: None)
  Receive Date: 20050330
  Receipt Date: 20050318
  Transmission Date: 20050727
  Serious: No
  Sender: FDA-Public Use
  Company Number: DE-2005-000504

PATIENT
  Age: 46 Year
  Sex: Female

DRUGS (2)
  1. MIRENA [Suspect]
     Dosage: 20 UG/DAY, CONT, INTRA-UTERINE
     Route: 015
     Dates: start: 19990101
  2. THYRONAJOD (POTASSIUM IODIDE, LEVOTHYROXINE SODIUM) [Concomitant]

REACTIONS (1)
  - FIBROADENOMA OF BREAST [None]
